FAERS Safety Report 9358244 (Version 1)
Quarter: 2013Q2

REPORT INFORMATION
  Report Type: Spontaneous
  Country: US (occurrence: None)
  Receive Date: 20130619
  Receipt Date: 20130619
  Transmission Date: 20140414
  Serious: Yes (Other)
  Sender: FDA-Public Use
  Company Number: None

PATIENT
  Sex: Male

DRUGS (1)
  1. HUMIRA [Suspect]
     Indication: CROHN^S DISEASE
     Dosage: EVERY OTHER WEEK
     Route: 058
     Dates: start: 20130607, end: 20130618

REACTIONS (4)
  - Anaemia [None]
  - Increased tendency to bruise [None]
  - Haemorrhage [None]
  - Skin cancer [None]
